APPROVED DRUG PRODUCT: FLUOXETINE HYDROCHLORIDE
Active Ingredient: FLUOXETINE HYDROCHLORIDE
Strength: EQ 60MG BASE
Dosage Form/Route: TABLET;ORAL
Application: A211632 | Product #001 | TE Code: AB
Applicant: LUPIN LTD
Approved: Feb 8, 2019 | RLD: No | RS: No | Type: RX